FAERS Safety Report 6145908-4 (Version None)
Quarter: 2009Q2

REPORT INFORMATION
  Report Type: 
  Country: None (occurrence: None)
  Receive Date: 20090407
  Receipt Date: 20090326
  Transmission Date: 20091009
  Serious: Yes (Death, Other)
  Sender: FDA-Public Use
  Company Number: GB-ROCHE-624269

PATIENT
  Age: 89 Year
  Sex: Male
  Weight: 54 kg

DRUGS (12)
  1. NAPROXEN [Suspect]
     Indication: ANALGESIA
     Route: 048
     Dates: end: 20080601
  2. ACLASTA [Suspect]
     Route: 042
     Dates: start: 20080605, end: 20080605
  3. ADCAL D3 [Concomitant]
     Route: 048
     Dates: start: 20080530, end: 20080613
  4. BUTRANS [Concomitant]
     Indication: ANALGESIA
     Route: 061
     Dates: start: 20080530
  5. CALCIUM GLUCONATE [Concomitant]
     Route: 042
     Dates: start: 20080611, end: 20080612
  6. CLARITHROMYCIN [Concomitant]
     Route: 048
     Dates: start: 20080609
  7. FUNGILIN [Concomitant]
     Route: 048
     Dates: start: 20080529, end: 20080603
  8. LANSOPRAZOLE [Concomitant]
     Route: 048
  9. LATANOPROST [Concomitant]
     Indication: GLAUCOMA
     Route: 031
  10. METOCLOPRAMIDE [Concomitant]
     Indication: VOMITING
     Route: 048
     Dates: start: 20080609
  11. NYSTATIN [Concomitant]
     Route: 048
     Dates: start: 20080612
  12. ORAMORPH SR [Concomitant]
     Indication: ANALGESIA
     Route: 048
     Dates: start: 20080604

REACTIONS (6)
  - BLOOD CREATININE INCREASED [None]
  - BODY TEMPERATURE INCREASED [None]
  - DEHYDRATION [None]
  - HEART RATE INCREASED [None]
  - LOWER RESPIRATORY TRACT INFECTION [None]
  - RENAL FAILURE ACUTE [None]
